FAERS Safety Report 7699183-X (Version None)
Quarter: 2011Q3

REPORT INFORMATION
  Report Type: 
  Country: None (occurrence: None)
  Receive Date: 20110819
  Receipt Date: 20110727
  Transmission Date: 20111222
  Serious: Yes (Other)
  Sender: FDA-Public Use
  Company Number: US-BAYER-2011-061696

PATIENT
  Age: 63 Year
  Sex: Female

DRUGS (2)
  1. BETASERON [Suspect]
     Indication: SECONDARY PROGRESSIVE MULTIPLE SCLEROSIS
     Dosage: 2 MIU, QOD
     Dates: start: 20110712
  2. IBUPROFEN [Concomitant]

REACTIONS (5)
  - ORAL DISORDER [None]
  - CENTRAL NERVOUS SYSTEM LESION [None]
  - PAIN [None]
  - ORAL MUCOSAL DISCOLOURATION [None]
  - INFLUENZA LIKE ILLNESS [None]
